FAERS Safety Report 22006516 (Version 1)
Quarter: 2023Q1

REPORT INFORMATION
  Report Type: Other
  Country: None (occurrence: GB)
  Receive Date: 20230217
  Receipt Date: 20230217
  Transmission Date: 20230417
  Serious: Yes (Hospitalization)
  Sender: FDA-Public Use
  Company Number: GB-Nova Laboratories Limited-2138038

PATIENT
  Age: 36 Year
  Sex: Male

DRUGS (1)
  1. PURIXAN [Suspect]
     Active Substance: MERCAPTOPURINE
     Indication: Colitis ulcerative

REACTIONS (4)
  - Hepatic infection [Unknown]
  - Bone marrow disorder [Recovering/Resolving]
  - Epstein-Barr virus infection [Recovered/Resolved]
  - Off label use [None]
